FAERS Safety Report 22592422 (Version 4)
Quarter: 2023Q4

REPORT INFORMATION
  Report Type: Report from Study
  Country: AR (occurrence: AR)
  Receive Date: 20230613
  Receipt Date: 20231129
  Transmission Date: 20240110
  Serious: Yes (Other)
  Sender: FDA-Public Use
  Company Number: AR-002147023-NVSC2022AR077864

PATIENT
  Age: 22 Year
  Sex: Female

DRUGS (3)
  1. COSENTYX [Suspect]
     Active Substance: SECUKINUMAB
     Indication: Axial spondyloarthritis
     Dosage: 150 MG, QMO
     Route: 058
     Dates: start: 20220325
  2. COSENTYX [Suspect]
     Active Substance: SECUKINUMAB
     Dosage: 150 MG, QMO (LAST DOSE IN AUG YEAR NOT SPECIFIED)
     Route: 058
  3. COSENTYX [Suspect]
     Active Substance: SECUKINUMAB
     Dosage: 300 MG, QMO
     Route: 058
     Dates: end: 20230618

REACTIONS (29)
  - Autoimmune disorder [Unknown]
  - Gastrointestinal inflammation [Unknown]
  - Feeling abnormal [Not Recovered/Not Resolved]
  - Pyrexia [Unknown]
  - Back pain [Unknown]
  - Gastrointestinal disorder [Unknown]
  - Chills [Unknown]
  - Urinary tract infection [Unknown]
  - Dysuria [Unknown]
  - Malaise [Unknown]
  - Viral pharyngitis [Unknown]
  - Catarrh [Unknown]
  - White blood cell count increased [Unknown]
  - Abdominal discomfort [Unknown]
  - Vomiting [Unknown]
  - Vestibular disorder [Not Recovered/Not Resolved]
  - Discomfort [Unknown]
  - Axial spondyloarthritis [Not Recovered/Not Resolved]
  - Pain in extremity [Unknown]
  - Movement disorder [Unknown]
  - Gait disturbance [Unknown]
  - Pain [Not Recovered/Not Resolved]
  - Arthralgia [Unknown]
  - Arthritis [Unknown]
  - Condition aggravated [Not Recovered/Not Resolved]
  - Diarrhoea [Recovered/Resolved]
  - Diarrhoea [Unknown]
  - Pharyngitis [Unknown]
  - Drug ineffective [Unknown]

NARRATIVE: CASE EVENT DATE: 20220325
